FAERS Safety Report 15273131 (Version 1)
Quarter: 2018Q4

REPORT INFORMATION
  Report Type: Spontaneous
  Country: SE (occurrence: SE)
  Receive Date: 20180813
  Receipt Date: 20180813
  Transmission Date: 20190204
  Serious: Yes (Other)
  Sender: FDA-Public Use
  Company Number: SE-MYLANLABS-2018M1060804

PATIENT
  Age: 26 Year
  Sex: Female

DRUGS (1)
  1. FLUOXETIN ?MYLAN? [Suspect]
     Active Substance: FLUOXETINE HYDROCHLORIDE
     Indication: DEPRESSION
     Dosage: UNK
     Dates: end: 20180701

REACTIONS (4)
  - Trichotillomania [Unknown]
  - Psychiatric symptom [Unknown]
  - Impulse-control disorder [Unknown]
  - Suicide attempt [Unknown]

NARRATIVE: CASE EVENT DATE: 2018
